FAERS Safety Report 12944822 (Version 5)
Quarter: 2017Q4

REPORT INFORMATION
  Report Type: Report from Study
  Country: None (occurrence: US)
  Receive Date: 20161115
  Receipt Date: 20171219
  Transmission Date: 20180320
  Serious: Yes (Hospitalization, Other)
  Sender: FDA-Public Use
  Company Number: US-ABBVIE-16K-163-1774670-00

PATIENT
  Age: 52 Year
  Sex: Female
  Weight: 63.56 kg

DRUGS (14)
  1. CALCIUM [Concomitant]
     Active Substance: CALCIUM
     Indication: MINERAL SUPPLEMENTATION
  2. VITAMIN D [Concomitant]
     Active Substance: CHOLECALCIFEROL
     Indication: VITAMIN SUPPLEMENTATION
  3. GABAPENTIN. [Concomitant]
     Active Substance: GABAPENTIN
     Indication: NEURALGIA
  4. ASPIRIN. [Concomitant]
     Active Substance: ASPIRIN
     Indication: ANTICOAGULANT THERAPY
  5. SYNTHROID [Concomitant]
     Active Substance: LEVOTHYROXINE SODIUM
     Indication: HYPOTHYROIDISM
  6. METHOTREXATE. [Concomitant]
     Active Substance: METHOTREXATE
     Indication: RHEUMATOID ARTHRITIS
     Dates: start: 2015
  7. METOPROLOL. [Concomitant]
     Active Substance: METOPROLOL
     Indication: HYPERTENSION
  8. HUMIRA [Suspect]
     Active Substance: ADALIMUMAB
     Indication: RHEUMATOID ARTHRITIS
     Route: 058
     Dates: start: 20121215
  9. BACLOFEN. [Concomitant]
     Active Substance: BACLOFEN
     Indication: MUSCLE RELAXANT THERAPY
  10. METHOTREXATE. [Concomitant]
     Active Substance: METHOTREXATE
     Dates: start: 20170328
  11. COENZYME Q10 [Concomitant]
     Active Substance: UBIDECARENONE
     Indication: ENZYME SUPPLEMENTATION
  12. FENOFIBRATE. [Concomitant]
     Active Substance: FENOFIBRATE
     Indication: BLOOD CHOLESTEROL INCREASED
  13. CRESTOR [Concomitant]
     Active Substance: ROSUVASTATIN CALCIUM
     Indication: BLOOD CHOLESTEROL INCREASED
  14. PROTONIX [Concomitant]
     Active Substance: PANTOPRAZOLE SODIUM
     Indication: GASTROOESOPHAGEAL REFLUX DISEASE

REACTIONS (8)
  - Cystitis [Not Recovered/Not Resolved]
  - Drug effect incomplete [Recovered/Resolved]
  - Stress [Unknown]
  - Arthralgia [Recovered/Resolved]
  - Myocardial infarction [Recovered/Resolved]
  - Nephrolithiasis [Recovered/Resolved]
  - Coronary artery occlusion [Not Recovered/Not Resolved]
  - Clavicle fracture [Unknown]

NARRATIVE: CASE EVENT DATE: 2015
